FAERS Safety Report 9551693 (Version 1)
Quarter: 2013Q3

REPORT INFORMATION
  Report Type: Spontaneous
  Country: US (occurrence: US)
  Receive Date: 20130925
  Receipt Date: 20130925
  Transmission Date: 20140515
  Serious: No
  Sender: FDA-Public Use
  Company Number: US-MYLANLABS-2013S1015093

PATIENT
  Age: 79 Year
  Sex: Female

DRUGS (4)
  1. NIFEDIPINE EXTENDED RELEASE [Suspect]
     Indication: BLOOD PRESSURE INCREASED
     Route: 048
     Dates: start: 201307, end: 201307
  2. COREG [Concomitant]
  3. VITAMIN D [Concomitant]
  4. CO Q-10 [Concomitant]

REACTIONS (1)
  - Dizziness [Recovered/Resolved]
